FAERS Safety Report 10551502 (Version 1)
Quarter: 2014Q4

REPORT INFORMATION
  Report Type: Spontaneous
  Country: US (occurrence: None)
  Receive Date: 20141027
  Receipt Date: 20141027
  Transmission Date: 20150529
  Serious: Yes (Death, Life-Threatening)
  Sender: FDA-Public Use
  Company Number: AMAG201400392

PATIENT
  Age: 84 Year
  Sex: Male
  Weight: 97.5 kg

DRUGS (2)
  1. VASOPRESSOR [Suspect]
     Active Substance: UNSPECIFIED INGREDIENT
  2. FERAHEME [Suspect]
     Active Substance: FERUMOXYTOL NON-STOICHIOMETRIC MAGNETITE
     Indication: IRON DEFICIENCY ANAEMIA
     Dosage: IV PUSH, SINGLE
     Route: 042
     Dates: start: 20141021, end: 20141021

REACTIONS (2)
  - Cardio-respiratory arrest [None]
  - Anaphylactic reaction [None]

NARRATIVE: CASE EVENT DATE: 20141021
